FAERS Safety Report 8114939-7 (Version None)
Quarter: 2012Q1

REPORT INFORMATION
  Report Type: 
  Country: None (occurrence: None)
  Receive Date: 20120201
  Receipt Date: 20120124
  Transmission Date: 20120608
  Serious: Yes (Life-Threatening, Hospitalization, Other)
  Sender: FDA-Public Use
  Company Number: AUR-APL-2010-01972

PATIENT
  Age: 74 Year
  Sex: Female

DRUGS (5)
  1. ZOFRAN [Suspect]
     Indication: NAUSEA
     Dosage: 4 MG, INTRAVENOUS
     Route: 042
  2. CARVEDILOL [Suspect]
     Indication: PRODUCT USED FOR UNKNOWN INDICATION
  3. CITALOPRAM HYDROBROMIDE [Suspect]
     Indication: PRODUCT USED FOR UNKNOWN INDICATION
  4. AMIODARONE HCL [Suspect]
     Indication: VENTRICULAR TACHYCARDIA
  5. FENTANYL [Concomitant]

REACTIONS (7)
  - ANXIETY [None]
  - HYPOMAGNESAEMIA [None]
  - PAIN [None]
  - NAUSEA [None]
  - ATRIOVENTRICULAR BLOCK FIRST DEGREE [None]
  - TORSADE DE POINTES [None]
  - HYPOKALAEMIA [None]
